FAERS Safety Report 5825844-0 (Version None)
Quarter: 2008Q3

REPORT INFORMATION
  Report Type: 
  Country: None (occurrence: None)
  Receive Date: 20080729
  Receipt Date: 20080205
  Transmission Date: 20090109
  Serious: No
  Sender: FDA-Public Use
  Company Number: US-BAUSCH-2008BL002871

PATIENT
  Age: 63 Year
  Sex: Male
  Weight: 82 kg

DRUGS (1)
  1. CROMOLYN SODIUM [Suspect]
     Indication: PROPHYLAXIS
     Route: 045
     Dates: start: 20080202, end: 20080203

REACTIONS (3)
  - DRUG INEFFECTIVE [None]
  - RHINORRHOEA [None]
  - SNEEZING [None]
